FAERS Safety Report 10615982 (Version 2)
Quarter: 2014Q4

REPORT INFORMATION
  Report Type: Spontaneous
  Country: FR (occurrence: FR)
  Receive Date: 20141201
  Receipt Date: 20141224
  Transmission Date: 20150529
  Serious: Yes (Hospitalization)
  Sender: FDA-Public Use
  Company Number: FR-JNJFOC-20141115143

PATIENT
  Age: 84 Year
  Sex: Female

DRUGS (1)
  1. XARELTO [Suspect]
     Active Substance: RIVAROXABAN
     Indication: PRODUCT USED FOR UNKNOWN INDICATION
     Route: 048
     Dates: start: 20140830, end: 20140830

REACTIONS (3)
  - Cerebral haematoma [Recovering/Resolving]
  - Aphasia [Recovering/Resolving]
  - Hemiparesis [Recovered/Resolved]

NARRATIVE: CASE EVENT DATE: 20140830
